FAERS Safety Report 26071264 (Version 1)
Quarter: 2025Q4

REPORT INFORMATION
  Report Type: Spontaneous
  Country: US (occurrence: None)
  Receive Date: 20251120
  Receipt Date: 20251120
  Transmission Date: 20260118
  Serious: Yes (Other)
  Sender: FDA-CTU
  Company Number: None

PATIENT
  Age: 48 Year
  Sex: Female
  Weight: 81.45 kg

DRUGS (7)
  1. ZONISAMIDE [Suspect]
     Active Substance: ZONISAMIDE
     Indication: Headache
     Dosage: FREQUENCY : AT BEDTIME;?
     Route: 048
     Dates: start: 20251116, end: 20251117
  2. ZONISAMIDE [Suspect]
     Active Substance: ZONISAMIDE
     Indication: Off label use
  3. WELLBUTRIN [Concomitant]
     Active Substance: BUPROPION HYDROCHLORIDE
  4. TRAZODONE [Concomitant]
     Active Substance: TRAZODONE HYDROCHLORIDE
  5. PHENTERMINE [Concomitant]
     Active Substance: PHENTERMINE
  6. D3K2 [Concomitant]
  7. FISH OIL [Concomitant]
     Active Substance: FISH OIL

REACTIONS (3)
  - Influenza like illness [None]
  - Vision blurred [None]
  - Nystagmus [None]

NARRATIVE: CASE EVENT DATE: 20251117
